FAERS Safety Report 15135441 (Version 3)
Quarter: 2018Q3

REPORT INFORMATION
  Report Type: Spontaneous
  Country: IT (occurrence: IT)
  Receive Date: 20180712
  Receipt Date: 20180820
  Transmission Date: 20181010
  Serious: Yes (Other)
  Sender: FDA-Public Use
  Company Number: IT-OTSUKA-2018_018515

PATIENT
  Age: 18 Year
  Sex: Female

DRUGS (2)
  1. ABILIFY [Suspect]
     Active Substance: ARIPIPRAZOLE
     Indication: DRUG ABUSE
     Dosage: 260 MG, UNK (ORAL USE PERFORATED BLISTER WITH UNIT DOSE (ALL/ALL) 28X1)
     Route: 065
  2. ABILIFY [Suspect]
     Active Substance: ARIPIPRAZOLE
     Dosage: UNK (ORAL USE PERFORATED BLISTER WITH UNIT DOSE (ALL/ALL) 28X1)
     Route: 065
     Dates: start: 20180101, end: 20180217

REACTIONS (4)
  - Drug abuse [Unknown]
  - Toxicity to various agents [Recovering/Resolving]
  - Product use in unapproved indication [Unknown]
  - Overdose [Unknown]

NARRATIVE: CASE EVENT DATE: 20180317
